FAERS Safety Report 10065312 (Version 1)
Quarter: 2014Q1

REPORT INFORMATION
  Report Type: Spontaneous
  Country: US (occurrence: None)
  Receive Date: 20140328
  Receipt Date: 20140328
  Transmission Date: 20141002
  Serious: No
  Sender: FDA-Public Use
  Company Number: 1000052725

PATIENT
  Age: 73 Year
  Sex: Male

DRUGS (2)
  1. LINZESS [Suspect]
     Indication: CONSTIPATION
     Dosage: 290 MCG ( 290 MCG, 1 IN 1 D, ORAL)
     Route: 048
     Dates: start: 20140107
  2. BLOOD PRESSURE PILL ( NOS) (BLOOD PRESSURE PILL ( NOS) (BLOOD PRESSURE PILL ( NOS) [Concomitant]

REACTIONS (5)
  - Flatulence [None]
  - Abdominal distension [None]
  - Diarrhoea [None]
  - Abdominal pain [None]
  - Headache [None]
